FAERS Safety Report 6846292-0 (Version None)
Quarter: 2010Q3

REPORT INFORMATION
  Report Type: 
  Country: None (occurrence: None)
  Receive Date: 20100715
  Receipt Date: 20070917
  Transmission Date: 20110219
  Serious: Yes (Other)
  Sender: FDA-Public Use
  Company Number: US-PFIZER INC-2007078212

PATIENT
  Age: 32 Year
  Sex: Female
  Weight: 97.727 kg

DRUGS (5)
  1. CHANTIX [Suspect]
     Indication: SMOKING CESSATION THERAPY
     Dates: start: 20070901
  2. SYNTHROID [Suspect]
     Indication: HYPOTHYROIDISM
  3. ZOLOFT [Concomitant]
  4. AMBIEN [Concomitant]
  5. PRILOSEC [Concomitant]

REACTIONS (1)
  - EUPHORIC MOOD [None]
